FAERS Safety Report 7357063-3 (Version None)
Quarter: 2011Q1

REPORT INFORMATION
  Report Type: 
  Country: None (occurrence: None)
  Receive Date: 20110308
  Receipt Date: 20110225
  Transmission Date: 20110831
  Serious: Yes (Other)
  Sender: FDA-Public Use
  Company Number: DSJ-2010-21824

PATIENT
  Age: 47 Year
  Sex: Female

DRUGS (3)
  1. OFLOCET OTIC SOLUTION (OFLOXACIN)  (EAR DROPS) (OFLOXACIN) [Suspect]
     Indication: EAR INFECTION
     Dosage: AURICULAR (OTIC)
  2. OFLOXACIN [Concomitant]
  3. PREDNISONE [Concomitant]

REACTIONS (4)
  - TENOSYNOVITIS [None]
  - TENDONITIS [None]
  - TENDON DISORDER [None]
  - ARTHRALGIA [None]
